FAERS Safety Report 7775644-X (Version None)
Quarter: 2011Q3

REPORT INFORMATION
  Report Type: 
  Country: None (occurrence: None)
  Receive Date: 20110923
  Receipt Date: 20110919
  Transmission Date: 20111222
  Serious: Yes (Death, Hospitalization)
  Sender: FDA-Public Use
  Company Number: US-GLAXOSMITHKLINE-A0915568A

PATIENT
  Age: 71 Year
  Sex: Female

DRUGS (2)
  1. AVANDIA [Suspect]
     Indication: DIABETES MELLITUS
     Route: 048
  2. AVANDARYL [Suspect]
     Indication: DIABETES MELLITUS
     Route: 048

REACTIONS (12)
  - DYSPNOEA [None]
  - CARDIOMEGALY [None]
  - CORONARY ARTERY DISEASE [None]
  - ARRHYTHMIA [None]
  - DEATH [None]
  - HYPERLIPIDAEMIA [None]
  - CARDIAC FAILURE CONGESTIVE [None]
  - FRACTURE [None]
  - MYOCARDIAL INFARCTION [None]
  - HYPERTENSION [None]
  - ATRIAL FIBRILLATION [None]
  - ANAEMIA [None]
